FAERS Safety Report 4280479-9 (Version None)
Quarter: 2004Q1

REPORT INFORMATION
  Report Type: 
  Country: None (occurrence: None)
  Receive Date: 20040127
  Receipt Date: 20040114
  Transmission Date: 20041129
  Serious: Yes (Hospitalization)
  Sender: FDA-Public Use
  Company Number: 2004002987

PATIENT
  Age: 34 Year
  Sex: Female

DRUGS (1)
  1. LITHIUM CARBONATE [Suspect]
     Indication: BIPOLAR DISORDER

REACTIONS (12)
  - DIABETES INSIPIDUS [None]
  - ELECTROCARDIOGRAM QRS COMPLEX [None]
  - ERYTHEMA [None]
  - EYELID PTOSIS [None]
  - HAEMANGIOMA [None]
  - MOTOR DYSFUNCTION [None]
  - NEONATAL RESPIRATORY DISTRESS SYNDROME [None]
  - POLYHYDRAMNIOS [None]
  - PREMATURE BABY [None]
  - PREMATURE RUPTURE OF MEMBRANES [None]
  - SKIN LESION [None]
  - TACHYCARDIA FOETAL [None]
